FAERS Safety Report 8240699-5 (Version None)
Quarter: 2012Q1

REPORT INFORMATION
  Report Type: 
  Country: None (occurrence: None)
  Receive Date: 20120328
  Receipt Date: 20120323
  Transmission Date: 20120608
  Serious: Yes (Other)
  Sender: FDA-Public Use
  Company Number: GB-JNJFOC-20120309264

PATIENT
  Sex: Female

DRUGS (1)
  1. NICORETTE [Suspect]
     Indication: SMOKING CESSATION THERAPY
     Dosage: AS INSTRUCTED
     Route: 048
     Dates: start: 20120101

REACTIONS (4)
  - SCAR [None]
  - ORAL PAIN [None]
  - APPLICATION SITE BURN [None]
  - PRODUCT QUALITY ISSUE [None]
